FAERS Safety Report 16088176 (Version 1)
Quarter: 2019Q1

REPORT INFORMATION
  Report Type: Spontaneous
  Country: US (occurrence: US)
  Receive Date: 20190214
  Receipt Date: 20190214
  Transmission Date: 20190418
  Serious: Yes (Life-Threatening, Hospitalization)
  Sender: FDA-Public Use
  Company Number: None

PATIENT
  Age: 78 Year
  Sex: Male
  Weight: 9525 kg

DRUGS (1)
  1. APIXABAN [Suspect]
     Active Substance: APIXABAN
     Indication: ATRIAL FIBRILLATION
     Route: 048
     Dates: start: 20180210, end: 20190213

REACTIONS (5)
  - Diarrhoea [None]
  - Frequent bowel movements [None]
  - Pseudomembranous colitis [None]
  - Gastrointestinal haemorrhage [None]
  - Clostridium test positive [None]

NARRATIVE: CASE EVENT DATE: 20190213
